FAERS Safety Report 10231593 (Version 2)
Quarter: 2014Q2

REPORT INFORMATION
  Report Type: Spontaneous
  Country: GB (occurrence: GB)
  Receive Date: 20140611
  Receipt Date: 20140620
  Transmission Date: 20141212
  Serious: Yes (Other)
  Sender: FDA-Public Use
  Company Number: ALCN2014GB003281

PATIENT
  Sex: Female

DRUGS (1)
  1. SYSTANE BALANCE RESTORATIVE FORMULA [Suspect]
     Dosage: UNK
     Route: 047

REACTIONS (1)
  - Ulcerative keratitis [Unknown]
